FAERS Safety Report 8127824-1 (Version None)
Quarter: 2012Q1

REPORT INFORMATION
  Report Type: 
  Country: None (occurrence: None)
  Receive Date: 20120210
  Receipt Date: 20110706
  Transmission Date: 20120608
  Serious: No
  Sender: FDA-Public Use
  Company Number: US-GLAXOSMITHKLINE-A0935146A

PATIENT
  Age: 50 Year
  Sex: Female

DRUGS (5)
  1. METOPROLOL [Concomitant]
  2. CENTRUM VITAMINS [Concomitant]
  3. PAXIL [Suspect]
     Indication: OBSESSIVE-COMPULSIVE DISORDER
     Dosage: 20MG PER DAY
     Route: 048
     Dates: start: 20110101, end: 20110623
  4. RANITIDINE [Concomitant]
  5. ALPRAZOLAM [Concomitant]

REACTIONS (1)
  - VERTIGO [None]
